FAERS Safety Report 5793309-0 (Version None)
Quarter: 2008Q2

REPORT INFORMATION
  Report Type: 
  Country: None (occurrence: None)
  Receive Date: 20080627
  Receipt Date: 20080626
  Transmission Date: 20081010
  Serious: Yes (Other)
  Sender: FDA-Public Use
  Company Number: A0734898A

PATIENT
  Age: 47 Year
  Sex: Male
  Weight: 133 kg

DRUGS (2)
  1. ALLI [Suspect]
     Dates: start: 20080601, end: 20080601
  2. ATENOLOL [Concomitant]

REACTIONS (4)
  - ABDOMINAL PAIN UPPER [None]
  - DEFAECATION URGENCY [None]
  - FREQUENT BOWEL MOVEMENTS [None]
  - RECTAL HAEMORRHAGE [None]
